FAERS Safety Report 5419392-X (Version None)
Quarter: 2007Q3

REPORT INFORMATION
  Report Type: 
  Country: None (occurrence: None)
  Receive Date: 20070816
  Receipt Date: 20070816
  Transmission Date: 20080115
  Serious: Yes (Hospitalization, Other)
  Sender: FDA-Public Use
  Company Number: None

PATIENT
  Age: 57 Year
  Sex: Female
  Weight: 61.2356 kg

DRUGS (1)
  1. BONIVA [Suspect]
     Indication: RESORPTION BONE INCREASED
     Dosage: 1 150 MG. TABLET  1 PER MONTH  PO
     Route: 048
     Dates: start: 20060816, end: 20070716

REACTIONS (6)
  - ARTHROPATHY [None]
  - BONE PAIN [None]
  - DIZZINESS [None]
  - DYSPNOEA [None]
  - MIGRAINE [None]
  - NAUSEA [None]
